FAERS Safety Report 7391340-5 (Version None)
Quarter: 2011Q2

REPORT INFORMATION
  Report Type: 
  Country: None (occurrence: None)
  Receive Date: 20110404
  Receipt Date: 20110323
  Transmission Date: 20111010
  Serious: Yes (Life-Threatening, Hospitalization, Other)
  Sender: FDA-Public Use
  Company Number: ES-SANOFI-AVENTIS-2011SA017747

PATIENT
  Age: 69 Year
  Sex: Female

DRUGS (5)
  1. SINTROM [Concomitant]
  2. MULTAQ [Suspect]
     Route: 048
     Dates: start: 20110201
  3. HMG COA REDUCTASE INHIBITORS [Concomitant]
  4. BETA BLOCKING AGENTS [Concomitant]
  5. DIURETICS [Concomitant]

REACTIONS (5)
  - MULTI-ORGAN FAILURE [None]
  - CARDIAC FAILURE [None]
  - RENAL FAILURE [None]
  - HEPATOCELLULAR INJURY [None]
  - ACUTE HEPATIC FAILURE [None]
